FAERS Safety Report 4533003-7 (Version None)
Quarter: 2004Q4

REPORT INFORMATION
  Report Type: 
  Country: None (occurrence: None)
  Receive Date: 20041206
  Receipt Date: 20041008
  Transmission Date: 20050328
  Serious: No
  Sender: FDA-Public Use
  Company Number: USA041080625

PATIENT
  Age: 48 Year
  Sex: Male

DRUGS (5)
  1. CYMBALTA [Suspect]
     Indication: PAIN
     Dosage: 60 MG DAY
  2. FENTANYL [Concomitant]
  3. XANAX (ALPRAZOLAM DUM) [Concomitant]
  4. KLONOPIN [Concomitant]
  5. FLUOXETINE [Concomitant]

REACTIONS (2)
  - PANIC ATTACK [None]
  - SUICIDAL IDEATION [None]
